APPROVED DRUG PRODUCT: VANCOMYCIN HYDROCHLORIDE
Active Ingredient: VANCOMYCIN HYDROCHLORIDE
Strength: EQ 10GM BASE/VIAL
Dosage Form/Route: INJECTABLE;INJECTION
Application: A065455 | Product #001
Applicant: HOSPIRA INC
Approved: Apr 29, 2009 | RLD: No | RS: No | Type: DISCN